FAERS Safety Report 22133362 (Version 1)
Quarter: 2023Q1

REPORT INFORMATION
  Report Type: Spontaneous
  Country: JP (occurrence: JP)
  Receive Date: 20230324
  Receipt Date: 20230324
  Transmission Date: 20230418
  Serious: Yes (Hospitalization, Other)
  Sender: FDA-Public Use
  Company Number: JP-BAXTER-2023BAX015703

PATIENT
  Age: 76 Year
  Sex: Male

DRUGS (2)
  1. REGUNEAL LCA [Suspect]
     Active Substance: CALCIUM CHLORIDE\DEXTROSE MONOHYDRATE\HYDROCHLORIC ACID\MAGNESIUM CHLORIDE\SODIUM BICARBONATE\SODIUM
     Indication: Chronic kidney disease
     Dosage: 5.0 L (DOSING INTERVAL NOT REPORTED)
     Route: 033
     Dates: start: 20200626
  2. REGUNEAL LCA [Suspect]
     Active Substance: CALCIUM CHLORIDE\DEXTROSE MONOHYDRATE\HYDROCHLORIC ACID\MAGNESIUM CHLORIDE\SODIUM BICARBONATE\SODIUM
     Indication: Chronic kidney disease
     Dosage: 2.5L (DOSING INTERVAL NOT REPORTED)
     Route: 033
     Dates: start: 20220210

REACTIONS (2)
  - Femur fracture [Recovered/Resolved]
  - Fall [Unknown]

NARRATIVE: CASE EVENT DATE: 20230125
